FAERS Safety Report 23675932 (Version 1)
Quarter: 2024Q1

REPORT INFORMATION
  Report Type: Report from Study
  Country: PR (occurrence: PR)
  Receive Date: 20240327
  Receipt Date: 20240327
  Transmission Date: 20240410
  Serious: Yes (Other)
  Sender: FDA-Public Use
  Company Number: PR-ABBVIE-5691224

PATIENT
  Age: 71 Year
  Sex: Male
  Weight: 83 kg

DRUGS (1)
  1. SKYRIZI [Suspect]
     Active Substance: RISANKIZUMAB-RZAA
     Indication: Psoriasis
     Dosage: FORM STRENGTH 150 MILLIGRAM
     Route: 058
     Dates: start: 20230208

REACTIONS (1)
  - Prostate cancer [Recovering/Resolving]

NARRATIVE: CASE EVENT DATE: 20231101
